FAERS Safety Report 9270061 (Version 2)
Quarter: 2013Q2

REPORT INFORMATION
  Report Type: Spontaneous
  Country: US (occurrence: US)
  Receive Date: 20130503
  Receipt Date: 20130612
  Transmission Date: 20140414
  Serious: Yes (Other)
  Sender: FDA-Public Use
  Company Number: US-PFIZER INC-2013138835

PATIENT
  Age: 66 Year
  Sex: Female
  Weight: 54.42 kg

DRUGS (7)
  1. GABAPENTIN [Suspect]
     Indication: DEPRESSION
     Dosage: UNK
     Dates: start: 201209, end: 201211
  2. GABAPENTIN [Suspect]
     Indication: FIBROMYALGIA
  3. LOSARTAN [Concomitant]
     Indication: HYPERTENSION
     Dosage: UNK
  4. AMLODIPINE [Concomitant]
     Indication: HYPERTENSION
     Dosage: UNK
  5. CYMBALTA [Concomitant]
     Indication: DEPRESSION
     Dosage: UNK
     Dates: end: 2012
  6. VALIUM [Concomitant]
     Indication: DEPRESSION
     Dosage: UNK
  7. DEXILANT [Concomitant]
     Indication: GASTROOESOPHAGEAL REFLUX DISEASE
     Dosage: UNK

REACTIONS (5)
  - Off label use [Unknown]
  - Intervertebral disc disorder [Unknown]
  - Nerve injury [Unknown]
  - Blood cholesterol increased [Unknown]
  - Depression [Unknown]
